FAERS Safety Report 6527247-2 (Version None)
Quarter: 2010Q1

REPORT INFORMATION
  Report Type: 
  Country: None (occurrence: None)
  Receive Date: 20100104
  Receipt Date: 20100104
  Transmission Date: 20100710
  Serious: Yes (Disabling, Other)
  Sender: FDA-Public Use
  Company Number: None

PATIENT
  Age: 62 Year
  Sex: Female
  Weight: 61.4 kg

DRUGS (2)
  1. CIPRO [Suspect]
     Indication: KIDNEY INFECTION
     Dosage: 500 MG TWICE DAILY ORAL
     Route: 048
     Dates: start: 20091229, end: 20100101
  2. CIPRO [Suspect]
     Indication: URINARY TRACT INFECTION
     Dosage: 500 MG TWICE DAILY ORAL
     Route: 048
     Dates: start: 20091229, end: 20100101

REACTIONS (3)
  - ABDOMINAL PAIN UPPER [None]
  - MYALGIA [None]
  - NAUSEA [None]
